FAERS Safety Report 9003755 (Version 1)
Quarter: 2013Q1

REPORT INFORMATION
  Report Type: Spontaneous
  Country: US (occurrence: US)
  Receive Date: 20130108
  Receipt Date: 20130108
  Transmission Date: 20140127
  Serious: No
  Sender: FDA-Public Use
  Company Number: US-GLAXOSMITHKLINE-A0973073A

PATIENT
  Sex: Male

DRUGS (1)
  1. LOVAZA [Suspect]
     Indication: BLOOD CHOLESTEROL INCREASED
     Dosage: 4CAP PER DAY
     Route: 048

REACTIONS (4)
  - Abdominal pain upper [Recovering/Resolving]
  - Ageusia [Unknown]
  - Dysgeusia [Not Recovered/Not Resolved]
  - Underdose [Unknown]
